FAERS Safety Report 9096449 (Version 2)
Quarter: 2013Q4

REPORT INFORMATION
  Report Type: Spontaneous
  Country: US (occurrence: US)
  Receive Date: 20130211
  Receipt Date: 20131206
  Transmission Date: 20140711
  Serious: Yes (Hospitalization, Other)
  Sender: FDA-Public Use
  Company Number: US-BAYER-2013-016376

PATIENT
  Age: 36 Year
  Sex: Female
  Weight: 52.15 kg

DRUGS (6)
  1. YAZ [Suspect]
     Indication: ACNE
     Dosage: UNK
     Route: 048
     Dates: start: 200702, end: 200706
  2. YASMIN [Suspect]
     Indication: ACNE
     Dosage: UNK
     Dates: start: 200702, end: 200706
  3. OCELLA [Suspect]
     Indication: ACNE
     Dosage: UNK
     Route: 048
     Dates: start: 200702, end: 200706
  4. ALPRAZOLAM [Concomitant]
     Dosage: UNK
     Dates: start: 2006, end: 2011
  5. DAILY VITAMINS [Concomitant]
  6. XANAX [Concomitant]
     Indication: ANXIETY
     Dosage: 2 MG, HS
     Route: 048
     Dates: start: 20070606

REACTIONS (8)
  - Thrombosis [None]
  - Deep vein thrombosis [None]
  - Pelvic venous thrombosis [None]
  - Deep vein thrombosis [None]
  - Injury [None]
  - Pain [None]
  - Emotional distress [None]
  - Pain [None]
